FAERS Safety Report 7658783-3 (Version None)
Quarter: 2011Q3

REPORT INFORMATION
  Report Type: 
  Country: None (occurrence: None)
  Receive Date: 20110805
  Receipt Date: 20110805
  Transmission Date: 20111222
  Serious: Yes (Hospitalization)
  Sender: FDA-Public Use
  Company Number: None

PATIENT
  Age: 6 Year
  Sex: Male
  Weight: 16.329 kg

DRUGS (2)
  1. DIURIL [Suspect]
     Indication: NEPHROLITHIASIS
     Dosage: 4 ML BY MOUTH TWICE DAILY
     Route: 048
     Dates: start: 20110802, end: 20110803
  2. DIURIL [Suspect]
     Indication: PROPHYLAXIS
     Dosage: 4 ML BY MOUTH TWICE DAILY
     Route: 048
     Dates: start: 20110802, end: 20110803

REACTIONS (3)
  - LOSS OF CONSCIOUSNESS [None]
  - BLOOD PRESSURE DECREASED [None]
  - HEART RATE DECREASED [None]
